FAERS Safety Report 9747921 (Version 1)
Quarter: 2013Q4

REPORT INFORMATION
  Report Type: Spontaneous
  Country: GB (occurrence: None)
  Receive Date: 20131206
  Receipt Date: 20131206
  Transmission Date: 20140711
  Serious: Yes (Life-Threatening, Hospitalization, Disabling)
  Sender: FDA-Public Use
  Company Number: FK201305200

PATIENT
  Age: 72 Year
  Sex: Female
  Weight: 70 kg

DRUGS (10)
  1. METHOTREXATE (METHOTREXATE) [Suspect]
     Indication: RHEUMATOID ARTHRITIS
     Route: 048
     Dates: start: 20130328, end: 20130821
  2. ALENDRONIC ACID [Concomitant]
  3. CALCIHEW DS (LEKOVIT CA) [Concomitant]
  4. CO-CODAMOL [Concomitant]
  5. HYDROXYCHLOROQUINE [Concomitant]
  6. METFORMIN [Concomitant]
  7. PREDNISOLONE [Concomitant]
  8. PROPRANOLOL [Concomitant]
  9. SIMVASTATIN [Concomitant]
  10. YENTREVE [Suspect]

REACTIONS (1)
  - Tonsil cancer [None]
